FAERS Safety Report 23175599 (Version 2)
Quarter: 2023Q4

REPORT INFORMATION
  Report Type: Spontaneous
  Country: US (occurrence: None)
  Receive Date: 20231113
  Receipt Date: 20231226
  Transmission Date: 20240109
  Serious: No
  Sender: FDA-Public Use
  Company Number: 2023A247894

PATIENT
  Sex: Female

DRUGS (1)
  1. BYDUREON BCISE [Suspect]
     Active Substance: EXENATIDE
     Dosage: 2.0MG UNKNOWN

REACTIONS (6)
  - Illness [Unknown]
  - Hypoacusis [Unknown]
  - Vomiting [Unknown]
  - Headache [Unknown]
  - Wrong technique in device usage process [Unknown]
  - Device malfunction [Unknown]
